FAERS Safety Report 6087001-5 (Version None)
Quarter: 2009Q1

REPORT INFORMATION
  Report Type: 
  Country: None (occurrence: None)
  Receive Date: 20090217
  Receipt Date: 20090202
  Transmission Date: 20090719
  Serious: Yes (Death)
  Sender: FDA-Public Use
  Company Number: CHPA2009US01891

PATIENT
  Age: 31 Year
  Sex: Female

DRUGS (11)
  1. DIPHENHYDRAMINE HCL [Suspect]
     Dosage: ORAL
     Route: 048
  2. ACETAMINOPHEN [Suspect]
     Dosage: ORAL
     Route: 048
  3. VENLAFAXINE HCL [Suspect]
     Dosage: ORAL
     Route: 048
  4. VALPROIC ACID [Suspect]
     Dosage: ORAL
     Route: 048
  5. ACETAMINOPHEN AND HYDROCODONE BITARTRATE [Suspect]
     Dosage: ORAL
     Route: 048
  6. PROMETHAZINE HCL AND CODEINE [Suspect]
     Dosage: ORAL
     Route: 048
  7. DULOXETINE (DULOXETINE) [Suspect]
     Dosage: ORAL
     Route: 048
  8. TRAZODONE HCL [Suspect]
     Dosage: ORAL
     Route: 048
  9. PSEUDOEPHEDRINE HCL [Suspect]
     Dosage: ORAL
     Route: 048
  10. ACETAMINOPHEN [Suspect]
     Dosage: ORAL
     Route: 048
  11. ETHANOL (ETHANOL) [Suspect]
     Dosage: ORAL
     Route: 048

REACTIONS (1)
  - DEATH [None]
